FAERS Safety Report 24406319 (Version 6)
Quarter: 2025Q2

REPORT INFORMATION
  Report Type: Spontaneous
  Country: US (occurrence: US)
  Receive Date: 20241007
  Receipt Date: 20250407
  Transmission Date: 20250717
  Serious: Yes (Hospitalization)
  Sender: BRISTOL MYERS SQUIBB
  Company Number: US-BRISTOL-MYERS SQUIBB COMPANY-2024-155612

PATIENT
  Age: 68 Year
  Sex: Female

DRUGS (4)
  1. POMALYST [Suspect]
     Active Substance: POMALIDOMIDE
     Indication: Primary amyloidosis
     Dosage: TAKE 1 CAPSULE BY MOUTH 1 TIME A DAY FOR 21 DAYS ON AND 7 DAYS OFF.
     Route: 048
     Dates: start: 202409
  2. POMALYST [Suspect]
     Active Substance: POMALIDOMIDE
     Indication: Plasma cell myeloma
     Dosage: TAKE 1 CAPSULE BY MOUTH 1 TIME A DAY FOR 21 DAYS ON AND 7 DAYS OFF.
     Route: 048
  3. POMALYST [Suspect]
     Active Substance: POMALIDOMIDE
     Route: 048
  4. POMALYST [Suspect]
     Active Substance: POMALIDOMIDE
     Dosage: 1 TIME A DAY
     Route: 048

REACTIONS (10)
  - Fluid retention [Unknown]
  - Hypotension [Unknown]
  - Pruritus [Unknown]
  - Feeling abnormal [Unknown]
  - Sinus disorder [Unknown]
  - Dyspnoea [Unknown]
  - Oedema [Unknown]
  - Loss of personal independence in daily activities [Unknown]
  - Fatigue [Unknown]
  - Asthenia [Unknown]

NARRATIVE: CASE EVENT DATE: 20240924
